FAERS Safety Report 10488845 (Version 1)
Quarter: 2014Q4

REPORT INFORMATION
  Report Type: Spontaneous
  Country: FR (occurrence: FR)
  Receive Date: 20141002
  Receipt Date: 20141002
  Transmission Date: 20150528
  Serious: Yes (Death, Hospitalization)
  Sender: FDA-Public Use
  Company Number: FR-JNJFOC-20140909460

PATIENT
  Sex: Female

DRUGS (14)
  1. LASILIX [Concomitant]
     Active Substance: FUROSEMIDE
  2. PROCORALAN [Concomitant]
     Active Substance: IVABRADINE
  3. DIFFU K [Concomitant]
     Active Substance: POTASSIUM CHLORIDE
  4. COUMADINE [Concomitant]
     Active Substance: WARFARIN SODIUM
  5. RISPERDAL [Suspect]
     Active Substance: RISPERIDONE
     Indication: ANXIETY
     Route: 048
     Dates: start: 20140722, end: 20140726
  6. PANTOPRAZOLE [Concomitant]
     Active Substance: PANTOPRAZOLE SODIUM
  7. STILNOX [Concomitant]
     Active Substance: ZOLPIDEM TARTRATE
     Indication: INSOMNIA
  8. DOLIPRANE [Concomitant]
     Active Substance: ACETAMINOPHEN
  9. TAREG [Concomitant]
     Active Substance: VALSARTAN
  10. SERESTA [Suspect]
     Active Substance: OXAZEPAM
     Indication: ANXIETY
     Route: 048
     Dates: start: 20140623, end: 20140726
  11. METOPROLOL TARTRATE. [Concomitant]
     Active Substance: METOPROLOL TARTRATE
  12. KARDEGIC [Concomitant]
     Active Substance: ASPIRIN LYSINE
  13. MIANSERINE HCL PCH [Suspect]
     Active Substance: MIANSERIN HYDROCHLORIDE
     Indication: ANXIETY
     Route: 065
     Dates: start: 20140623, end: 20140726
  14. ZOLPIDEM [Concomitant]
     Active Substance: ZOLPIDEM\ZOLPIDEM TARTRATE

REACTIONS (5)
  - Fall [Fatal]
  - Dyspnoea [Fatal]
  - Pneumonia aspiration [Fatal]
  - General physical health deterioration [Fatal]
  - Product use issue [Unknown]
